FAERS Safety Report 12136219 (Version 3)
Quarter: 2016Q2

REPORT INFORMATION
  Report Type: Spontaneous
  Country: FR (occurrence: FR)
  Receive Date: 20160302
  Receipt Date: 20160407
  Transmission Date: 20160815
  Serious: Yes (Death, Other)
  Sender: FDA-Public Use
  Company Number: FR-CELGENE-FRA-2015125508

PATIENT

DRUGS (3)
  1. AZACITIDINE INJECTABLE [Suspect]
     Active Substance: AZACITIDINE
     Indication: PARANEOPLASTIC SYNDROME
  2. AZACITIDINE INJECTABLE [Suspect]
     Active Substance: AZACITIDINE
     Indication: MYELODYSPLASTIC SYNDROME
     Route: 058
  3. AZACITIDINE INJECTABLE [Suspect]
     Active Substance: AZACITIDINE
     Indication: OFF LABEL USE

REACTIONS (11)
  - Autoimmune disorder [Unknown]
  - Cerebral haemorrhage [Fatal]
  - Deep vein thrombosis [Unknown]
  - Paraneoplastic syndrome [Unknown]
  - Infection [Fatal]
  - Therapeutic response unexpected [Unknown]
  - Myocardial infarction [Fatal]
  - Interstitial lung disease [Unknown]
  - No therapeutic response [Unknown]
  - Death [Fatal]
  - Acute myeloid leukaemia [Unknown]
